FAERS Safety Report 14254832 (Version 1)
Quarter: 2017Q4

REPORT INFORMATION
  Report Type: Spontaneous
  Country: US (occurrence: None)
  Receive Date: 20171205
  Receipt Date: 20171205
  Transmission Date: 20180321
  Serious: Yes (Death)
  Sender: FDA-Public Use
  Company Number: None

PATIENT
  Age: 63 Year
  Sex: Female
  Weight: 64.7 kg

DRUGS (13)
  1. ZYPREXA [Concomitant]
     Active Substance: OLANZAPINE
  2. LANSOPRAZOLE (PREVACID) [Concomitant]
  3. ASPIRIN, ENTERIC COATED [Concomitant]
  4. LORATADINE (CLARITIN) [Concomitant]
  5. TEMAZEPAM (RESTORIL) [Concomitant]
  6. HYPROCODONE-HOMATROPINE (HYDKOMET) [Concomitant]
  7. AMLODIPINE-BENAZEPRIL (LOTREL) [Concomitant]
  8. VITAMIN E [Concomitant]
     Active Substance: .ALPHA.-TOCOPHEROL
  9. METHYLPHENIDATE (RITALIN) [Concomitant]
  10. CALCIUM CARBONATE/VITAMIN D3 (CALCIUM + D) [Concomitant]
  11. PERCOCET [Concomitant]
     Active Substance: ACETAMINOPHEN\OXYCODONE HYDROCHLORIDE
  12. LIPITOR [Concomitant]
     Active Substance: ATORVASTATIN CALCIUM
  13. NIVOLUMAB [Suspect]
     Active Substance: NIVOLUMAB
     Indication: RENAL CELL CARCINOMA
     Route: 042
     Dates: start: 20170929, end: 20171110

REACTIONS (1)
  - Disease progression [None]

NARRATIVE: CASE EVENT DATE: 20171122
